FAERS Safety Report 4322690-4 (Version None)
Quarter: 2004Q1

REPORT INFORMATION
  Report Type: 
  Country: None (occurrence: None)
  Receive Date: 20040318
  Receipt Date: 20031027
  Transmission Date: 20041129
  Serious: Yes (Hospitalization)
  Sender: FDA-Public Use
  Company Number: MK200310-0293-1

PATIENT
  Age: 55 Year
  Sex: Female

DRUGS (1)
  1. OPTIRAY 320 [Suspect]
     Dosage: 30CC, IV, ONCE
     Route: 042
     Dates: start: 20031023, end: 20031023

REACTIONS (4)
  - EXTRAVASATION [None]
  - INJECTION SITE ERYTHEMA [None]
  - INJECTION SITE SWELLING [None]
  - MEDICATION ERROR [None]
